FAERS Safety Report 8417025-1 (Version None)
Quarter: 2012Q2

REPORT INFORMATION
  Report Type: 
  Country: None (occurrence: None)
  Receive Date: 20120606
  Receipt Date: 20120529
  Transmission Date: 20120825
  Serious: Yes (Hospitalization)
  Sender: FDA-Public Use
  Company Number: US-JNJFOC-20120520636

PATIENT
  Sex: Female
  Weight: 54.43 kg

DRUGS (2)
  1. HUMALOG [Concomitant]
     Route: 065
  2. ULTRAM ER [Suspect]
     Indication: ARTHRALGIA
     Dosage: ONCE A DAY
     Route: 048

REACTIONS (4)
  - THERAPY CESSATION [None]
  - DRUG DOSE OMISSION [None]
  - MYOCARDIAL INFARCTION [None]
  - WITHDRAWAL SYNDROME [None]
